FAERS Safety Report 10269142 (Version 2)
Quarter: 2014Q3

REPORT INFORMATION
  Report Type: Report from Study
  Country: US (occurrence: US)
  Receive Date: 20140630
  Receipt Date: 20140710
  Transmission Date: 20150326
  Serious: Yes (Hospitalization, Other)
  Sender: FDA-Public Use
  Company Number: US-GILEAD-2014-0106484

PATIENT
  Age: 56 Year
  Sex: Female
  Weight: 90.7 kg

DRUGS (31)
  1. SOFOSBUVIR [Suspect]
     Active Substance: SOFOSBUVIR
     Indication: CHRONIC HEPATITIS C
     Dosage: 400 MG, QD
     Route: 048
     Dates: start: 20140513
  2. AMBIEN [Suspect]
     Active Substance: ZOLPIDEM TARTRATE
     Indication: DEPRESSION
     Dosage: 10 MG
     Route: 048
     Dates: start: 20140501
  3. ELAVIL [Concomitant]
     Active Substance: AMITRIPTYLINE HYDROCHLORIDE
     Indication: DEPRESSION
     Dosage: 100 MG, 1 IN 1 DAY
     Route: 048
     Dates: start: 20140505
  4. PHENERGAN [Concomitant]
     Active Substance: PROMETHAZINE HYDROCHLORIDE
     Dosage: UNK
  5. REMERON [Concomitant]
     Active Substance: MIRTAZAPINE
     Indication: DEPRESSION
     Dosage: 15 MG, IN 1 DAY
     Route: 048
     Dates: start: 20131230
  6. PROAIR HFA [Concomitant]
     Active Substance: ALBUTEROL SULFATE
     Indication: PRODUCT USED FOR UNKNOWN INDICATION
     Dosage: 1 DOSE(S), 1 IN 4 HOUR
     Dates: start: 20121129
  7. AMBIEN [Suspect]
     Active Substance: ZOLPIDEM TARTRATE
     Indication: INSOMNIA
     Dosage: 5-10 MG AT BEDTIME AS NEEDED
     Route: 048
     Dates: start: 20140529, end: 20140530
  8. COMPAZINE [Concomitant]
     Active Substance: PROCHLORPERAZINE MALEATE
     Indication: NAUSEA
     Dosage: 10 MG, 1 IN 8 HOUR
     Route: 048
     Dates: start: 20140217
  9. REMERON [Concomitant]
     Active Substance: MIRTAZAPINE
     Indication: INSOMNIA
     Dosage: 15 MG NIGHTLY
     Route: 048
     Dates: start: 20140529, end: 20140530
  10. NEXIUM [Concomitant]
     Active Substance: ESOMEPRAZOLE MAGNESIUM
     Indication: GASTROOESOPHAGEAL REFLUX DISEASE
     Dosage: 40 MG, 1 IN 1 DAY
     Route: 048
     Dates: start: 20131204
  11. COMBIVENT RESPIMAT [Concomitant]
     Active Substance: ALBUTEROL SULFATE\IPRATROPIUM BROMIDE
     Indication: PRODUCT USED FOR UNKNOWN INDICATION
     Dosage: 1 DOSE(S), 4 IN 1 DAY
     Dates: start: 20130624
  12. COMBIVENT RESPIMAT [Concomitant]
     Active Substance: ALBUTEROL SULFATE\IPRATROPIUM BROMIDE
     Dosage: 1 PUFF 4 TIMES DAILY
     Dates: start: 20140529, end: 20140529
  13. LIDODERM [Concomitant]
     Active Substance: LIDOCAINE
     Dosage: 1 PATCH DAILY
     Dates: start: 20140529, end: 20140530
  14. HYDROCORTISONE. [Concomitant]
     Active Substance: HYDROCORTISONE
     Indication: PRODUCT USED FOR UNKNOWN INDICATION
     Dosage: 1 DOSE(S), 2 IN 1 DAY
     Route: 061
     Dates: start: 20131024
  15. PERCOCET [Concomitant]
     Active Substance: ACETAMINOPHEN\OXYCODONE HYDROCHLORIDE
     Dosage: 1 DF EVERY 8 HOURS
     Route: 048
     Dates: start: 20140529, end: 20140530
  16. BENADRYL [Suspect]
     Active Substance: DIPHENHYDRAMINE HYDROCHLORIDE
     Indication: PRODUCT USED FOR UNKNOWN INDICATION
     Dosage: UNK
     Route: 065
  17. SEROQUEL [Concomitant]
     Active Substance: QUETIAPINE FUMARATE
     Indication: INSOMNIA
  18. ELAVIL [Concomitant]
     Active Substance: AMITRIPTYLINE HYDROCHLORIDE
     Indication: INSOMNIA
     Dosage: 100 MG EVERY EVENING
     Dates: start: 20140529, end: 20140530
  19. NORVASC [Concomitant]
     Active Substance: AMLODIPINE BESYLATE
     Dosage: 5 MG DAILY
     Dates: start: 20140529, end: 20140530
  20. COMPAZINE [Concomitant]
     Active Substance: PROCHLORPERAZINE MALEATE
     Dosage: 10MG EVERY 8 HOURS
     Route: 048
     Dates: start: 20140529, end: 20140530
  21. CYMBALTA [Concomitant]
     Active Substance: DULOXETINE HYDROCHLORIDE
     Indication: DEPRESSION
     Dosage: 1 DOSE(S), 2 IN 1 DAY
     Route: 048
     Dates: start: 20130518
  22. SIMEPREVIR [Suspect]
     Active Substance: SIMEPREVIR
     Indication: CHRONIC HEPATITIS C
     Dosage: 150 MG, QD
     Route: 048
     Dates: start: 20140513
  23. LIDODERM [Concomitant]
     Active Substance: LIDOCAINE
     Indication: PRODUCT USED FOR UNKNOWN INDICATION
     Dosage: 700 MG, 1 IN 12 HOUR
     Route: 061
     Dates: start: 20140403
  24. RIBAVIRIN. [Concomitant]
     Active Substance: RIBAVIRIN
     Indication: CHRONIC HEPATITIS C
     Dosage: 600 MG, BID
     Route: 048
     Dates: start: 20140513
  25. SEROQUEL [Concomitant]
     Active Substance: QUETIAPINE FUMARATE
     Indication: DEPRESSION
     Dosage: 100 MG, UNK
     Route: 048
     Dates: start: 20140426
  26. PERCOCET [Concomitant]
     Active Substance: ACETAMINOPHEN\OXYCODONE HYDROCHLORIDE
     Indication: WOUND COMPLICATION
     Dosage: 1 DOSE(S), 1 IN 8 HOUR
     Route: 048
     Dates: start: 20120419
  27. FERROUS SULFATE [Concomitant]
     Active Substance: FERROUS SULFATE\FERROUS SULFATE, DRIED
     Dosage: 325 MG, QD
     Dates: start: 20140529, end: 20140530
  28. NEXIUM [Concomitant]
     Active Substance: ESOMEPRAZOLE MAGNESIUM
     Dosage: 40 MG, QD
     Dates: start: 20140529, end: 20140530
  29. NORVASC [Concomitant]
     Active Substance: AMLODIPINE BESYLATE
     Indication: HYPERTENSION
     Dosage: 5 MG, 1 IN 1 DAY
     Route: 048
     Dates: start: 20140426
  30. FERROUS SULFATE [Concomitant]
     Active Substance: FERROUS SULFATE\FERROUS SULFATE, DRIED
     Indication: PRODUCT USED FOR UNKNOWN INDICATION
     Dosage: 325 MG, 1 IN 1 DAY
     Route: 048
     Dates: start: 20131230
  31. CYMBALTA [Concomitant]
     Active Substance: DULOXETINE HYDROCHLORIDE
     Indication: INSOMNIA
     Dosage: 60 MG, BID
     Route: 048
     Dates: start: 20140529, end: 20140530

REACTIONS (6)
  - Renal failure acute [Recovered/Resolved]
  - Vomiting [Recovered/Resolved]
  - Nausea [Recovered/Resolved]
  - Dizziness [Recovered/Resolved]
  - Hyponatraemia [Recovered/Resolved]
  - Blood creatinine increased [Recovered/Resolved with Sequelae]

NARRATIVE: CASE EVENT DATE: 20140513
